FAERS Safety Report 9842315 (Version 1)
Quarter: 2013Q4

REPORT INFORMATION
  Report Type: Spontaneous
  Country: US (occurrence: None)
  Receive Date: 20131219
  Receipt Date: 20131219
  Transmission Date: 20140711
  Serious: Yes (Other)
  Sender: FDA-Public Use
  Company Number: 163-20785-12103792

PATIENT
  Age: 17 Year
  Sex: Female

DRUGS (2)
  1. THALOMID (THALIDOMIDE) (200 MILLIGRAM, CAPSULES) [Suspect]
     Indication: OSTEOSARCOMA
     Dosage: 200 MG, QHS, PO
     Route: 048
     Dates: start: 20120914
  2. CELEBREX (CELECOXIB) (CAPSULES) [Concomitant]

REACTIONS (3)
  - Loss of consciousness [None]
  - Rash [None]
  - Hypoaesthesia [None]
